FAERS Safety Report 10377865 (Version 1)
Quarter: 2014Q3

REPORT INFORMATION
  Report Type: Spontaneous
  Country: US (occurrence: None)
  Receive Date: 20140807
  Receipt Date: 20140807
  Transmission Date: 20150326
  Serious: No
  Sender: FDA-Public Use
  Company Number: HA14-133-AE

PATIENT
  Age: 78 Year
  Sex: Female
  Weight: 67.13 kg

DRUGS (2)
  1. GLYBURIDE. [Concomitant]
     Active Substance: GLYBURIDE
  2. METFORMIN HCL [Suspect]
     Active Substance: METFORMIN HYDROCHLORIDE
     Indication: DIABETES MELLITUS
     Dosage: 3 TABLETS A DAY
     Dates: start: 1992

REACTIONS (1)
  - Drug hypersensitivity [None]

NARRATIVE: CASE EVENT DATE: 20140406
